FAERS Safety Report 11938127 (Version 1)
Quarter: 2016Q1

REPORT INFORMATION
  Report Type: Spontaneous
  Country: US (occurrence: None)
  Receive Date: 20160121
  Receipt Date: 20160121
  Transmission Date: 20160526
  Serious: No
  Sender: FDA-Public Use
  Company Number: None

PATIENT
  Age: 58 Year
  Sex: Female
  Weight: 63.5 kg

DRUGS (1)
  1. ABSORBINE [Suspect]
     Active Substance: MENTHOL
     Indication: BACK PAIN

REACTIONS (6)
  - Application site pruritus [None]
  - Product adhesion issue [None]
  - Application site erythema [None]
  - Application site rash [None]
  - Rubber sensitivity [None]
  - Application site pain [None]

NARRATIVE: CASE EVENT DATE: 20160111
